FAERS Safety Report 7054238-8 (Version None)
Quarter: 2010Q4

REPORT INFORMATION
  Report Type: 
  Country: None (occurrence: None)
  Receive Date: 20101020
  Receipt Date: 20101008
  Transmission Date: 20110411
  Serious: Yes (Other)
  Sender: FDA-Public Use
  Company Number: MX-PFIZER INC-2010129077

PATIENT
  Age: 47 Year
  Sex: Female
  Weight: 50 kg

DRUGS (7)
  1. LYRICA [Suspect]
     Indication: FIBROMYALGIA
     Dosage: 75 MG, 2X/DAY
     Route: 048
     Dates: start: 20101006
  2. LYRICA [Interacting]
     Indication: MUSCLE SPASMS
  3. RIVOTRIL [Interacting]
     Indication: PANIC ATTACK
     Dosage: 150 MG, UNK
     Route: 048
     Dates: start: 19900101
  4. RIVOTRIL [Interacting]
     Indication: ANXIETY
  5. EFFEXOR [Concomitant]
     Indication: PANIC ATTACK
     Dosage: 75 MG, UNK
     Route: 048
     Dates: start: 19980101
  6. EFFEXOR [Concomitant]
     Indication: ANXIETY
  7. TRAMADOL [Concomitant]
     Indication: FIBROMYALGIA
     Dosage: UNK
     Route: 030

REACTIONS (6)
  - AMNESIA [None]
  - ANXIETY [None]
  - CONFUSIONAL STATE [None]
  - DRUG INTERACTION [None]
  - SOMNOLENCE [None]
  - SPEECH DISORDER [None]
